FAERS Safety Report 8829000 (Version 1)
Quarter: 2012Q4

REPORT INFORMATION
  Report Type: 
  Country: DE (occurrence: DE)
  Receive Date: 20121008
  Receipt Date: 20121008
  Transmission Date: 20130627
  Serious: Yes (Other)
  Sender: FDA-Public Use
  Company Number: DE-ROCHE-1139157

PATIENT
  Age: 81 Year
  Sex: Female

DRUGS (4)
  1. CEFTRIAXONE [Suspect]
     Indication: ABSCESS
     Route: 042
  2. METRONIDAZOLE [Concomitant]
  3. PARACETAMOL [Concomitant]
  4. ENOXAPARIN [Concomitant]
     Dosage: for 8 weeks
     Route: 065

REACTIONS (1)
  - Autoimmune thrombocytopenia [Recovered/Resolved]
